FAERS Safety Report 7584676-6 (Version None)
Quarter: 2011Q2

REPORT INFORMATION
  Report Type: 
  Country: None (occurrence: None)
  Receive Date: 20110630
  Receipt Date: 20110620
  Transmission Date: 20111010
  Serious: Yes (Other)
  Sender: FDA-Public Use
  Company Number: US-UCBSA-035685

PATIENT
  Sex: Male
  Weight: 79.5 kg

DRUGS (9)
  1. FOSAMAX [Concomitant]
     Indication: OSTEOPOROSIS
     Route: 048
     Dates: start: 20090817
  2. CITRUCEL [Concomitant]
     Indication: DIVERTICULUM
     Dosage: 1 PACKET
     Route: 048
     Dates: start: 20010709
  3. OMEPRAZOLE [Concomitant]
     Indication: GASTROOESOPHAGEAL REFLUX DISEASE
     Route: 048
     Dates: start: 20060124
  4. CERTOLIZUMAB PEGOL [Suspect]
     Route: 058
     Dates: end: 20110620
  5. LIPITOR [Concomitant]
     Indication: HYPERCHOLESTEROLAEMIA
     Route: 048
     Dates: start: 20060717
  6. BONINE [Concomitant]
     Indication: VERTIGO
     Route: 048
     Dates: start: 19840101
  7. ANDROGEL [Concomitant]
     Indication: ERECTILE DYSFUNCTION
     Dosage: 1 APPLICATION
     Route: 061
     Dates: start: 20101126
  8. CERTOLIZUMAB PEGOL [Suspect]
     Indication: CROHN'S DISEASE
     Dosage: C87085:ADMINISTRATION AT WEEK 0, 2 AND 4
     Route: 058
  9. CERTOLIZUMAB PEGOL [Suspect]
     Dosage: WEEK 0, 2 AND 4
     Route: 058

REACTIONS (2)
  - MALIGNANT MELANOMA [None]
  - BASAL CELL CARCINOMA [None]
